FAERS Safety Report 26138153 (Version 1)
Quarter: 2025Q4

REPORT INFORMATION
  Report Type: Spontaneous
  Country: CO (occurrence: CO)
  Receive Date: 20251210
  Receipt Date: 20251210
  Transmission Date: 20260117
  Serious: Yes (Other)
  Sender: STRIDES
  Company Number: CO-STRIDES ARCOLAB LIMITED-2025SP015380

PATIENT
  Age: 69 Year
  Sex: Female

DRUGS (6)
  1. MEMANTINE [Suspect]
     Active Substance: MEMANTINE
     Indication: Symptomatic treatment
     Dosage: UNK
     Route: 065
  2. MEMANTINE [Suspect]
     Active Substance: MEMANTINE
     Indication: Dementia
  3. LEVODOPA [Suspect]
     Active Substance: LEVODOPA
     Indication: Symptomatic treatment
     Dosage: UNK
     Route: 065
  4. LEVODOPA [Suspect]
     Active Substance: LEVODOPA
     Indication: Parkinsonism
  5. RIVASTIGMINE [Suspect]
     Active Substance: RIVASTIGMINE
     Indication: Symptomatic treatment
     Dosage: UNK
     Route: 065
  6. RIVASTIGMINE [Suspect]
     Active Substance: RIVASTIGMINE
     Indication: Dementia

REACTIONS (1)
  - Disease progression [Unknown]
